FAERS Safety Report 14624382 (Version 1)
Quarter: 2018Q1

REPORT INFORMATION
  Report Type: Spontaneous
  Country: US (occurrence: US)
  Receive Date: 20180309
  Receipt Date: 20180309
  Transmission Date: 20180509
  Serious: Yes (Other)
  Sender: FDA-Public Use
  Company Number: None

PATIENT
  Age: 50 Year
  Sex: Male
  Weight: 67.05 kg

DRUGS (18)
  1. LEVEMIR [Suspect]
     Active Substance: INSULIN DETEMIR
     Indication: DIABETES MELLITUS
     Route: 058
  2. VITAMIN B12 [Concomitant]
     Active Substance: CYANOCOBALAMIN
  3. MIRAPEX [Concomitant]
     Active Substance: PRAMIPEXOLE DIHYDROCHLORIDE
  4. ACTOS [Concomitant]
     Active Substance: PIOGLITAZONE HYDROCHLORIDE
  5. GABAPENTIN. [Concomitant]
     Active Substance: GABAPENTIN
  6. NAPROXEN. [Concomitant]
     Active Substance: NAPROXEN
  7. METROPOLOL [Concomitant]
     Active Substance: METOPROLOL
  8. PRISTQ [Concomitant]
  9. MELOXACAM [Concomitant]
  10. LANTUS [Suspect]
     Active Substance: INSULIN GLARGINE
     Indication: DIABETES MELLITUS
     Route: 058
  11. VALIUM [Concomitant]
     Active Substance: DIAZEPAM
  12. AZELASTINE. [Concomitant]
     Active Substance: AZELASTINE HYDROCHLORIDE
  13. OXAGEN [Concomitant]
  14. METFORMIN [Concomitant]
     Active Substance: METFORMIN HYDROCHLORIDE
  15. BUSPAR [Concomitant]
     Active Substance: BUSPIRONE HYDROCHLORIDE
  16. SIMVASTIN [Concomitant]
     Active Substance: SIMVASTATIN
  17. LATANAPROST [Concomitant]
     Active Substance: LATANOPROST
  18. ALBRUTROL SULFATE [Concomitant]

REACTIONS (6)
  - Blister [None]
  - Urticaria [None]
  - Dyspnoea [None]
  - Pruritus [None]
  - Blood glucose increased [None]
  - Rash [None]

NARRATIVE: CASE EVENT DATE: 20180128
